FAERS Safety Report 15964591 (Version 1)
Quarter: 2019Q1

REPORT INFORMATION
  Report Type: Spontaneous
  Country: FR (occurrence: FR)
  Receive Date: 20190215
  Receipt Date: 20190215
  Transmission Date: 20190417
  Serious: Yes (Hospitalization)
  Sender: FDA-Public Use
  Company Number: FR-SUN PHARMACEUTICAL INDUSTRIES LTD-2019RR-199171

PATIENT
  Age: 31 Year
  Sex: Female
  Weight: 57 kg

DRUGS (7)
  1. CLOMIPRAMINE (CHLORHYDRATE DE) [Suspect]
     Active Substance: CLOMIPRAMINE HYDROCHLORIDE
     Indication: INTENTIONAL OVERDOSE
     Dosage: 200 MILLIGRAM
     Route: 048
     Dates: start: 20180826, end: 20180826
  2. CYAMEMAZINE [Suspect]
     Active Substance: CYAMEMAZINE
     Indication: INTENTIONAL OVERDOSE
     Dosage: 1125 MILLIGRAM
     Route: 048
     Dates: start: 20180826, end: 20180826
  3. ZOPICLONE [Suspect]
     Active Substance: ZOPICLONE
     Indication: INTENTIONAL OVERDOSE
     Dosage: 105 MILLIGRAM
     Route: 048
     Dates: start: 20180826, end: 20180826
  4. MIRTAZAPINE. [Suspect]
     Active Substance: MIRTAZAPINE
     Indication: INTENTIONAL OVERDOSE
     Dosage: 300 MILLIGRAM
     Route: 048
     Dates: start: 20180826, end: 20180826
  5. AMITRIPTYLINE [Suspect]
     Active Substance: AMITRIPTYLINE
     Indication: INTENTIONAL OVERDOSE
     Dosage: 380 MILLIGRAM
     Route: 048
     Dates: start: 20180826, end: 20180826
  6. OLANZAPINE. [Suspect]
     Active Substance: OLANZAPINE
     Indication: INTENTIONAL OVERDOSE
     Dosage: 140 MILLIGRAM
     Route: 048
     Dates: start: 20180826, end: 20180826
  7. BROMAZEPAM [Suspect]
     Active Substance: BROMAZEPAM
     Indication: INTENTIONAL OVERDOSE
     Dosage: UNK
     Route: 048
     Dates: start: 20180826, end: 20180826

REACTIONS (3)
  - Sinus tachycardia [Not Recovered/Not Resolved]
  - Coma [Recovered/Resolved]
  - Electrocardiogram QT prolonged [Recovered/Resolved]

NARRATIVE: CASE EVENT DATE: 20180826
